FAERS Safety Report 6470595-5 (Version None)
Quarter: 2009Q4

REPORT INFORMATION
  Report Type: 
  Country: None (occurrence: None)
  Receive Date: 20091203
  Receipt Date: 20091104
  Transmission Date: 20100525
  Serious: No
  Sender: FDA-Public Use
  Company Number: US-ABBOTT-08P-163-0455368-00

PATIENT
  Sex: Female
  Weight: 88.984 kg

DRUGS (2)
  1. MERIDIA [Suspect]
     Indication: WEIGHT DECREASED
     Dosage: DAILY EVERY MORNING
     Route: 048
     Dates: start: 20080524, end: 20080530
  2. LOW ESTROGEN [Concomitant]
     Indication: CONTRACEPTION
     Route: 048

REACTIONS (1)
  - DIZZINESS [None]
